FAERS Safety Report 8097026-6 (Version None)
Quarter: 2012Q1

REPORT INFORMATION
  Report Type: 
  Country: None (occurrence: None)
  Receive Date: 20120126
  Receipt Date: 20120113
  Transmission Date: 20120608
  Serious: Yes (Hospitalization)
  Sender: FDA-Public Use
  Company Number: 2012S1000984

PATIENT
  Age: 63 Year
  Sex: Female

DRUGS (11)
  1. COREG [Concomitant]
  2. LISINOPRIL [Concomitant]
  3. SIMVASTATIN [Concomitant]
  4. FUROSEMIDE [Concomitant]
  5. WARFARIN SODIUM [Concomitant]
  6. LEXAPRO [Concomitant]
  7. ASPIRIN [Concomitant]
  8. FERROUS SULFATE TAB [Concomitant]
  9. DIGOXIN [Suspect]
     Indication: CARDIAC FAILURE
     Dosage: 0.125 MG; DAILY; ORAL
     Route: 048
     Dates: end: 20080222
  10. OMEPRAZOLE [Concomitant]
  11. SPIRONOLACTONE [Concomitant]

REACTIONS (6)
  - OVERDOSE [None]
  - FALL [None]
  - INTERNATIONAL NORMALISED RATIO INCREASED [None]
  - CONFUSIONAL STATE [None]
  - RENAL FAILURE ACUTE [None]
  - MUSCULAR WEAKNESS [None]
